FAERS Safety Report 22161379 (Version 1)
Quarter: 2023Q1

REPORT INFORMATION
  Report Type: Report from Study
  Country: TR (occurrence: TR)
  Receive Date: 20230331
  Receipt Date: 20230331
  Transmission Date: 20230418
  Serious: Yes (Death, Life-Threatening, Hospitalization)
  Sender: FDA-Public Use
  Company Number: TR-PFIZER INC-PV202300059216

PATIENT
  Age: 60 Year
  Sex: Male
  Weight: 95 kg

DRUGS (5)
  1. CARBOPLATIN [Suspect]
     Active Substance: CARBOPLATIN
     Indication: Non-small cell lung cancer
     Dosage: AUC 5, Q3W (ON DAY 1 OF EACH 21-DAY CYCLE; FOR FOUR CYCLES)
     Route: 042
     Dates: start: 20210531, end: 20210802
  2. CARBOPLATIN [Suspect]
     Active Substance: CARBOPLATIN
     Dosage: UNK
     Dates: start: 20220622
  3. PACLITAXEL [Suspect]
     Active Substance: PACLITAXEL
     Dosage: UNK
     Dates: start: 20220622
  4. PEMETREXED [Suspect]
     Active Substance: PEMETREXED
     Dosage: 500 MG/M2, Q3W (ON DAY 1 OF EACH 21-DAY CYCLE)
     Route: 042
     Dates: start: 20210531, end: 20220307
  5. INVESTIGATIONAL PRODUCT [Suspect]
     Active Substance: INVESTIGATIONAL PRODUCT
     Dosage: EVERY 3 WEEKS
     Dates: start: 20210531, end: 20220404

REACTIONS (2)
  - Pulmonary embolism [Fatal]
  - Cardiac arrest [Fatal]

NARRATIVE: CASE EVENT DATE: 20220627
